FAERS Safety Report 4429035-X (Version None)
Quarter: 2004Q3

REPORT INFORMATION
  Report Type: 
  Country: None (occurrence: None)
  Receive Date: 20040726
  Receipt Date: 20040303
  Transmission Date: 20050211
  Serious: No
  Sender: FDA-Public Use
  Company Number: USA040361340

PATIENT
  Age: 39 Year
  Sex: Female

DRUGS (4)
  1. FORTEO [Suspect]
     Indication: OSTEOPOROSIS
     Dates: start: 20031001
  2. MULTI-VITAMINS [Concomitant]
  3. VITAMIN D [Concomitant]
  4. TUMS (CALCIUM CARBONATE) [Concomitant]

REACTIONS (1)
  - PAIN IN EXTREMITY [None]
